FAERS Safety Report 18223650 (Version 2)
Quarter: 2020Q4

REPORT INFORMATION
  Report Type: Spontaneous
  Country: US (occurrence: US)
  Receive Date: 20200902
  Receipt Date: 20201112
  Transmission Date: 20210113
  Serious: No
  Sender: FDA-Public Use
  Company Number: US-PFIZER INC-2020338230

PATIENT
  Age: 56 Year
  Sex: Male

DRUGS (2)
  1. IBRANCE [Suspect]
     Active Substance: PALBOCICLIB
     Dosage: 100 MG
     Dates: start: 20200802
  2. IBRANCE [Suspect]
     Active Substance: PALBOCICLIB
     Dosage: 100 MG
     Dates: start: 20200601

REACTIONS (2)
  - Neoplasm progression [Unknown]
  - Dysphagia [Unknown]

NARRATIVE: CASE EVENT DATE: 2020
